FAERS Safety Report 13520765 (Version 4)
Quarter: 2018Q2

REPORT INFORMATION
  Report Type: Report from Study
  Country: None (occurrence: US)
  Receive Date: 20170508
  Receipt Date: 20180627
  Transmission Date: 20180711
  Serious: Yes (Other)
  Sender: FDA-Public Use
  Company Number: US-ABBVIE-17K-163-1961596-00

PATIENT
  Age: 52 Year
  Sex: Female

DRUGS (2)
  1. HUMIRA [Suspect]
     Active Substance: ADALIMUMAB
     Route: 058
  2. HUMIRA [Suspect]
     Active Substance: ADALIMUMAB
     Indication: RHEUMATOID ARTHRITIS
     Route: 058

REACTIONS (11)
  - Bladder mass [Unknown]
  - Liver disorder [Unknown]
  - Sjogren^s syndrome [Unknown]
  - Rubber sensitivity [Unknown]
  - Arthropod bite [Unknown]
  - Osteoarthritis [Unknown]
  - Hypertension [Unknown]
  - Bladder neoplasm [Unknown]
  - Osteoporosis [Unknown]
  - Urinary incontinence [Unknown]
  - Chronic kidney disease [Unknown]

NARRATIVE: CASE EVENT DATE: 20170302
